FAERS Safety Report 16528800 (Version 3)
Quarter: 2019Q3

REPORT INFORMATION
  Report Type: Spontaneous
  Country: KR (occurrence: KR)
  Receive Date: 20190703
  Receipt Date: 20190722
  Transmission Date: 20191004
  Serious: Yes (Death, Hospitalization, Other)
  Sender: FDA-Public Use
  Company Number: KR-009507513-1907KOR001182

PATIENT
  Sex: Male

DRUGS (1)
  1. KEYTRUDA [Suspect]
     Active Substance: PEMBROLIZUMAB
     Indication: GASTRIC CANCER
     Dosage: UNK
     Dates: start: 20190617, end: 20190620

REACTIONS (7)
  - Inappropriate schedule of product administration [Unknown]
  - Pneumonia [Fatal]
  - Sepsis [Fatal]
  - Malignant neoplasm progression [Fatal]
  - Adverse event [Unknown]
  - Acute kidney injury [Fatal]
  - Product use in unapproved indication [Unknown]

NARRATIVE: CASE EVENT DATE: 201906
